FAERS Safety Report 9550551 (Version 3)
Quarter: 2015Q2

REPORT INFORMATION
  Report Type: Report from Study
  Country: US (occurrence: US)
  Receive Date: 20130924
  Receipt Date: 20150528
  Transmission Date: 20150821
  Serious: Yes (Other)
  Sender: FDA-Public Use
  Company Number: US-SANOFI-AVENTIS-2013SA032667

PATIENT
  Age: 53 Year
  Sex: Female
  Weight: 65.31 kg

DRUGS (9)
  1. AUBAGIO [Suspect]
     Active Substance: TERIFLUNOMIDE
     Indication: MULTIPLE SCLEROSIS
     Route: 048
     Dates: start: 20140103
  2. AUBAGIO [Suspect]
     Active Substance: TERIFLUNOMIDE
     Indication: MULTIPLE SCLEROSIS
     Route: 048
     Dates: start: 20131007, end: 20131119
  3. AMBIEN [Concomitant]
     Active Substance: ZOLPIDEM TARTRATE
  4. PREDNISONE. [Concomitant]
     Active Substance: PREDNISONE
  5. LEXAPRO [Concomitant]
     Active Substance: ESCITALOPRAM OXALATE
     Indication: ANXIETY
     Route: 065
  6. AUBAGIO [Suspect]
     Active Substance: TERIFLUNOMIDE
     Indication: MULTIPLE SCLEROSIS
     Route: 048
     Dates: start: 20130322, end: 20130830
  7. AUBAGIO [Suspect]
     Active Substance: TERIFLUNOMIDE
     Indication: MULTIPLE SCLEROSIS
     Route: 048
     Dates: start: 20140106
  8. AUBAGIO [Suspect]
     Active Substance: TERIFLUNOMIDE
     Indication: MULTIPLE SCLEROSIS
     Route: 048
     Dates: start: 20130222
  9. LEXAPRO [Concomitant]
     Active Substance: ESCITALOPRAM OXALATE
     Indication: DEPRESSION
     Route: 065

REACTIONS (25)
  - Toothache [Not Recovered/Not Resolved]
  - Sciatica [Recovered/Resolved]
  - Arthralgia [Not Recovered/Not Resolved]
  - Nerve compression [Unknown]
  - Paraesthesia [Not Recovered/Not Resolved]
  - Soft tissue inflammation [Not Recovered/Not Resolved]
  - Hot flush [Unknown]
  - Unevaluable event [Unknown]
  - Renal cyst [Unknown]
  - Paraesthesia [Unknown]
  - Alopecia [Unknown]
  - Viral infection [Unknown]
  - Pollakiuria [Unknown]
  - Hepatic enzyme increased [Recovering/Resolving]
  - Headache [Not Recovered/Not Resolved]
  - Raynaud^s phenomenon [Unknown]
  - Hypoaesthesia [Unknown]
  - Sleep disorder [Unknown]
  - Fatigue [Unknown]
  - Ovarian cyst [Unknown]
  - Pruritus [Recovered/Resolved]
  - Food poisoning [Unknown]
  - Hypoaesthesia [Not Recovered/Not Resolved]
  - Uterine leiomyoma [Unknown]
  - Multiple sclerosis relapse [Not Recovered/Not Resolved]

NARRATIVE: CASE EVENT DATE: 2015
